FAERS Safety Report 8884377 (Version 1)
Quarter: 2012Q4

REPORT INFORMATION
  Report Type: 
  Country: US (occurrence: US)
  Receive Date: 20121104
  Receipt Date: 20121104
  Transmission Date: 20130627
  Serious: Yes (Other)
  Sender: FDA-Public Use
  Company Number: PHHY2012US099074

PATIENT
  Age: 51 None
  Sex: Female
  Weight: 56 kg

DRUGS (14)
  1. GILENYA [Suspect]
     Indication: MULTIPLE SCLEROSIS
     Dosage: 0.5 mg, QD
     Route: 048
     Dates: start: 20110914
  2. CLONIDINE [Concomitant]
     Indication: PANIC ATTACK
     Dosage: 0.1 mg, TID
  3. NEURONTIN [Concomitant]
     Dosage: 1600 mg, TID
  4. CELEXA [Concomitant]
     Dosage: 120 mg, QD
  5. TRAZODONE [Concomitant]
     Dosage: 100 mg, QD
  6. VALIUM [Concomitant]
     Dosage: 10 mg, PRN
  7. PROVIGIL [Concomitant]
     Dosage: 200 mg, QD
  8. SEROQUEL [Concomitant]
  9. LITHIUM [Concomitant]
  10. TOPAMAX [Concomitant]
  11. LAMOTRIGINE [Concomitant]
  12. FIORICET [Concomitant]
  13. HYDROXYZINE [Concomitant]
  14. SYNTHROID [Concomitant]

REACTIONS (8)
  - Convulsion [Not Recovered/Not Resolved]
  - Tremor [Unknown]
  - Electroencephalogram abnormal [Unknown]
  - Fall [Unknown]
  - Incontinence [Unknown]
  - Flushing [Not Recovered/Not Resolved]
  - Vision blurred [Not Recovered/Not Resolved]
  - Headache [Not Recovered/Not Resolved]
